FAERS Safety Report 8191897-0 (Version None)
Quarter: 2012Q1

REPORT INFORMATION
  Report Type: 
  Country: None (occurrence: None)
  Receive Date: 20120307
  Receipt Date: 20120224
  Transmission Date: 20120608
  Serious: Yes (Other)
  Sender: FDA-Public Use
  Company Number: PHFR2011GB01630

PATIENT
  Sex: Male

DRUGS (2)
  1. CLOZARIL [Suspect]
     Indication: SCHIZOPHRENIA
     Route: 048
     Dates: start: 20070531
  2. LANSOPRAZOLE [Concomitant]
     Indication: DYSPEPSIA

REACTIONS (5)
  - SCHIZOPHRENIA, PARANOID TYPE [None]
  - ANTISOCIAL PERSONALITY DISORDER [None]
  - BORDERLINE PERSONALITY DISORDER [None]
  - WHITE BLOOD CELL COUNT DECREASED [None]
  - NEUTROPHIL COUNT DECREASED [None]
